FAERS Safety Report 25401729 (Version 1)
Quarter: 2025Q2

REPORT INFORMATION
  Report Type: Spontaneous
  Country: US (occurrence: None)
  Receive Date: 20250603
  Receipt Date: 20250603
  Transmission Date: 20250716
  Serious: Yes (Hospitalization)
  Sender: FDA-CTU
  Company Number: None

PATIENT
  Age: 75 Year
  Sex: Male

DRUGS (2)
  1. TAMSULOSIN HYDROCHLORIDE [Suspect]
     Active Substance: TAMSULOSIN HYDROCHLORIDE
     Route: 048
     Dates: start: 20250411, end: 20250417
  2. SPIRONOLACTONE [Suspect]
     Active Substance: SPIRONOLACTONE
     Dosage: FREQUENCY : DAILY;?
     Route: 048
     Dates: start: 20250416, end: 20250417

REACTIONS (1)
  - Hypotension [None]

NARRATIVE: CASE EVENT DATE: 20250417
